FAERS Safety Report 20616175 (Version 2)
Quarter: 2022Q2

REPORT INFORMATION
  Report Type: Report from Study
  Country: CA (occurrence: CA)
  Receive Date: 20220321
  Receipt Date: 20220609
  Transmission Date: 20220721
  Serious: Yes (Other)
  Sender: FDA-Public Use
  Company Number: CA-MYLANLABS-2022M1020365

PATIENT
  Sex: Female

DRUGS (3)
  1. CLOZAPINE [Suspect]
     Active Substance: CLOZAPINE
     Indication: Product used for unknown indication
     Dosage: UNK
     Dates: start: 20220222, end: 20220310
  2. CLOZAPINE [Suspect]
     Active Substance: CLOZAPINE
     Dosage: 87.5 MILLIGRAM, QD
  3. CLOZAPINE [Suspect]
     Active Substance: CLOZAPINE
     Dosage: 50 MILLIGRAM, QD
     Dates: start: 20220303

REACTIONS (2)
  - Cardiac disorder [Unknown]
  - Troponin increased [Unknown]
